FAERS Safety Report 5391584-8 (Version None)
Quarter: 2007Q3

REPORT INFORMATION
  Report Type: 
  Country: None (occurrence: None)
  Receive Date: 20070717
  Receipt Date: 20070702
  Transmission Date: 20080115
  Serious: Yes (Hospitalization, Other)
  Sender: FDA-Public Use
  Company Number: 100#08#2007-02475

PATIENT
  Age: 55 Year
  Sex: Female

DRUGS (6)
  1. DOXORUBICIN HCL [Suspect]
     Indication: BREAST CANCER
     Dosage: 60 MG/M2;  1 CYCLE
  2. METHOTREXATE [Suspect]
     Indication: BREAST CANCER
     Dosage: INTRAVENOUS (NO OTHERWISE SPECIFIED)
     Route: 042
  3. FLUOROURACIL [Suspect]
     Indication: BREAST CANCER
     Dosage: INTRAVENOUS  (NO OTHERWISE SPECIFIED)
     Route: 042
  4. CYCLOPHOSPHAMIDE [Suspect]
     Indication: BREAST CANCER
     Dosage: 600 MG/M2;  1 CYCLE
  5. DOCETAXEL (DOCETAXEL) (DOCETAXEL) [Suspect]
     Indication: BREAST CANCER
     Dosage: INITIAL 45% REDUCTION OF THE 80MG/M2; 4 CYCLES
  6. FILGRASTIM (FILGRASTIM) (FILGRASTIM) [Concomitant]

REACTIONS (9)
  - CARDIAC FAILURE [None]
  - DYSURIA [None]
  - FOOD INTERACTION [None]
  - FURUNCLE [None]
  - MUCOSAL INFLAMMATION [None]
  - NEUTROPHIL COUNT DECREASED [None]
  - OEDEMA PERIPHERAL [None]
  - STOMATITIS [None]
  - VAGINAL INFLAMMATION [None]
